FAERS Safety Report 6596248-0 (Version None)
Quarter: 2010Q1

REPORT INFORMATION
  Report Type: 
  Country: None (occurrence: None)
  Receive Date: 20100223
  Receipt Date: 20100215
  Transmission Date: 20100710
  Serious: Yes (Hospitalization)
  Sender: FDA-Public Use
  Company Number: FR-ROCHE-685970

PATIENT
  Sex: Female
  Weight: 76 kg

DRUGS (8)
  1. AVASTIN [Suspect]
     Route: 042
     Dates: start: 20091211, end: 20100105
  2. TAXOTERE [Suspect]
     Indication: BREAST CANCER
     Route: 065
     Dates: start: 20091211, end: 20091211
  3. TAXOTERE [Suspect]
     Route: 065
     Dates: start: 20100105, end: 20100105
  4. ZOMETA [Concomitant]
     Route: 042
     Dates: start: 20100105
  5. DIAMICRON [Concomitant]
     Dosage: ONE DOSE IN MORNING
  6. COAPROVEL [Concomitant]
     Dosage: ONE DOSE DAILY
  7. NEXIUM [Concomitant]
     Dosage: ONE DOSE IN EVENING
  8. DOLIPRANE [Concomitant]
     Indication: PAIN

REACTIONS (1)
  - PSEUDOMEMBRANOUS COLITIS [None]
